FAERS Safety Report 11966224 (Version 1)
Quarter: 2016Q1

REPORT INFORMATION
  Report Type: Spontaneous
  Country: US (occurrence: None)
  Receive Date: 20160126
  Receipt Date: 20160126
  Transmission Date: 20160526
  Serious: Yes (Other)
  Sender: FDA-Public Use
  Company Number: None

PATIENT
  Age: 56 Year
  Sex: Female
  Weight: 99.79 kg

DRUGS (10)
  1. CRESTOR [Suspect]
     Active Substance: ROSUVASTATIN CALCIUM
     Indication: BLOOD CHOLESTEROL INCREASED
     Dosage: 1 A DAY  ONCE DAILY
     Route: 048
  2. BACLOFIN [Concomitant]
  3. LYRICA [Concomitant]
     Active Substance: PREGABALIN
  4. ZRYTEC [Concomitant]
  5. VITAMIN D [Concomitant]
     Active Substance: CHOLECALCIFEROL
  6. WARAFRIN [Concomitant]
  7. FOUROSIMIDE [Concomitant]
  8. BENICAR [Concomitant]
     Active Substance: OLMESARTAN MEDOXOMIL
  9. VITAMIN E [Concomitant]
     Active Substance: .ALPHA.-TOCOPHEROL
  10. BIOTIN [Concomitant]
     Active Substance: BIOTIN

REACTIONS (4)
  - Therapy cessation [None]
  - Anal haemorrhage [None]
  - Rectal haemorrhage [None]
  - Inability to afford medication [None]

NARRATIVE: CASE EVENT DATE: 20120404
